FAERS Safety Report 7563677-8 (Version None)
Quarter: 2011Q2

REPORT INFORMATION
  Report Type: 
  Country: None (occurrence: None)
  Receive Date: 20110615
  Receipt Date: 20110602
  Transmission Date: 20111010
  Serious: Yes (Death)
  Sender: FDA-Public Use
  Company Number: 1000017486

PATIENT
  Age: 15 Year
  Sex: Male
  Weight: 99.5 kg

DRUGS (2)
  1. ESCITALOPRAM [Suspect]
     Indication: DEPRESSION
     Dosage: 10 MG (10 MG,AT NIGHT) ; (80 MG,ONCE)
     Dates: start: 20090811, end: 20090901
  2. ESCITALOPRAM [Suspect]
     Indication: DEPRESSION
     Dosage: 10 MG (10 MG,AT NIGHT) ; (80 MG,ONCE)
     Dates: start: 20090902, end: 20090902

REACTIONS (8)
  - OVERDOSE [None]
  - OFF LABEL USE [None]
  - ARTHRALGIA [None]
  - MULTIPLE INJURIES [None]
  - COMPLETED SUICIDE [None]
  - TREATMENT NONCOMPLIANCE [None]
  - DIZZINESS [None]
  - INSOMNIA [None]
